FAERS Safety Report 19504258 (Version 1)
Quarter: 2021Q3

REPORT INFORMATION
  Report Type: Spontaneous
  Country: US (occurrence: US)
  Receive Date: 20210708
  Receipt Date: 20210708
  Transmission Date: 20211014
  Serious: Yes (Other)
  Sender: FDA-Public Use
  Company Number: US-DRREDDYS-LIT/USA/21/0137271

PATIENT
  Age: 42 Year
  Sex: Female

DRUGS (2)
  1. VALGANCICLOVIR. [Suspect]
     Active Substance: VALGANCICLOVIR
     Indication: VIRAL UVEITIS
  2. VALGANCICLOVIR. [Suspect]
     Active Substance: VALGANCICLOVIR
     Indication: PROPHYLAXIS
     Dosage: LOW DOSE FOR PERIOPERATIVE PROPHYLAXIS

REACTIONS (1)
  - Drug ineffective [Unknown]
